FAERS Safety Report 5334521-4 (Version None)
Quarter: 2007Q2

REPORT INFORMATION
  Report Type: 
  Country: None (occurrence: None)
  Receive Date: 20070525
  Receipt Date: 20070517
  Transmission Date: 20071010
  Serious: Yes (Hospitalization)
  Sender: FDA-Public Use
  Company Number: US-JNJFOC-20070504761

PATIENT
  Sex: Male

DRUGS (1)
  1. REMICADE [Suspect]
     Indication: DRUG USE FOR UNKNOWN INDICATION
     Route: 042

REACTIONS (6)
  - ARTHRALGIA [None]
  - BODY TEMPERATURE INCREASED [None]
  - ERYTHEMA [None]
  - IMMOBILE [None]
  - SWELLING [None]
  - VOMITING [None]
